FAERS Safety Report 4315048-5 (Version None)
Quarter: 2004Q1

REPORT INFORMATION
  Report Type: 
  Country: None (occurrence: None)
  Receive Date: 20040309
  Receipt Date: 20040219
  Transmission Date: 20041129
  Serious: Yes (Hospitalization)
  Sender: FDA-Public Use
  Company Number: JP_040202673

PATIENT
  Age: 55 Year
  Sex: Male
  Weight: 65 kg

DRUGS (10)
  1. ZYPREXA [Suspect]
     Indication: SCHIZOPHRENIA, PARANOID TYPE
     Dosage: 15 MG/3 DAY
     Dates: start: 20020614
  2. LEVOTOMIN (LEVOMEPROMAZINE MALEATE) [Concomitant]
  3. RISPERDAL [Concomitant]
  4. AKINETON [Concomitant]
  5. VEGETAMIN B [Concomitant]
  6. ROHIPNOL (FLUNITRAZEPAM) [Concomitant]
  7. PANTOSIN (PANTETHINE) [Concomitant]
  8. MAGNESIUM OXIDE [Concomitant]
  9. LAXOBERON (SODIUM PICOSULFATE) [Concomitant]
  10. ALLOPURINOL [Concomitant]

REACTIONS (7)
  - AGGRESSION [None]
  - BACK PAIN [None]
  - CONDITION AGGRAVATED [None]
  - HALLUCINATION, AUDITORY [None]
  - HOSTILITY [None]
  - SCHIZOPHRENIA, PARANOID TYPE [None]
  - SOLILOQUY [None]
